FAERS Safety Report 21160509 (Version 1)
Quarter: 2022Q3

REPORT INFORMATION
  Report Type: Spontaneous
  Country: CA (occurrence: None)
  Receive Date: 20220802
  Receipt Date: 20220802
  Transmission Date: 20221027
  Serious: Yes (Other)
  Sender: FDA-Public Use
  Company Number: 2022A268813

PATIENT
  Age: 87 Year
  Sex: Male

DRUGS (1)
  1. QUETIAPINE [Suspect]
     Active Substance: QUETIAPINE
     Route: 065

REACTIONS (4)
  - Anticholinergic syndrome [Unknown]
  - Bladder catheterisation [Unknown]
  - Dysuria [Unknown]
  - Urinary retention [Unknown]
